FAERS Safety Report 5643094-8 (Version None)
Quarter: 2008Q1

REPORT INFORMATION
  Report Type: 
  Country: None (occurrence: None)
  Receive Date: 20080227
  Receipt Date: 20080227
  Transmission Date: 20080703
  Serious: Yes (Hospitalization)
  Sender: FDA-Public Use
  Company Number: None

PATIENT
  Sex: Female
  Weight: 91.2 kg

DRUGS (1)
  1. TAXOL [Suspect]
     Dosage: 197 MG
     Dates: end: 20080124

REACTIONS (3)
  - NEUROPATHY PERIPHERAL [None]
  - POLYNEUROPATHY [None]
  - TINNITUS [None]
